FAERS Safety Report 17352757 (Version 3)
Quarter: 2023Q4

REPORT INFORMATION
  Report Type: Report from Study
  Country: PL (occurrence: PL)
  Receive Date: 20200131
  Receipt Date: 20231222
  Transmission Date: 20240109
  Serious: Yes (Other)
  Sender: FDA-Public Use
  Company Number: PL-BAYER-2020-013936

PATIENT
  Sex: Male

DRUGS (3)
  1. EYLEA [Suspect]
     Active Substance: AFLIBERCEPT
     Indication: Neovascular age-related macular degeneration
     Dosage: 2 MG AFLIBERCEPT, EQUIVALENT TO 50MCL OF SOLUTION, SOL FOR INJ, 40MG/ML
     Route: 031
     Dates: start: 20160531, end: 20200701
  2. EYLEA [Suspect]
     Active Substance: AFLIBERCEPT
     Dosage: RECEIVED 19TH EYLEA INJECTION, SOLUTION FOR INJECTION, 40 MG/ML
     Dates: start: 20200120, end: 20200120
  3. OTHER ANTIGLAUCOMA PREPARATIONS [Concomitant]
     Indication: Product used for unknown indication

REACTIONS (6)
  - Corneal striae [Unknown]
  - Corneal defect [Recovering/Resolving]
  - Visual acuity reduced [Unknown]
  - Purulent discharge [Unknown]
  - Eye pain [Unknown]
  - Drug ineffective [Unknown]

NARRATIVE: CASE EVENT DATE: 20200120
